FAERS Safety Report 16371835 (Version 1)
Quarter: 2019Q3

REPORT INFORMATION
  Report Type: Spontaneous
  Country: US (occurrence: US)
  Receive Date: 20190529
  Receipt Date: 20190529
  Transmission Date: 20191004
  Serious: Yes (Hospitalization)
  Sender: FDA-Public Use
  Company Number: None

PATIENT
  Age: 69 Year
  Sex: Female

DRUGS (10)
  1. SYMBICORT, SYNTHROID, VESICARE [Concomitant]
  2. TACROLIMUS. [Suspect]
     Active Substance: TACROLIMUS
     Indication: RENAL TRANSPLANT
     Dosage: ?          OTHER FREQUENCY:Q 12 HOURS;?
     Route: 048
     Dates: start: 20130913
  3. AZATHIOPRINE. [Suspect]
     Active Substance: AZATHIOPRINE
     Indication: RENAL TRANSPLANT
     Route: 048
     Dates: start: 20150709
  4. PRIMIDONE, PROTONIX, SINGULAIR [Concomitant]
  5. ASPIRIN, BACTRIM, BENTYL [Concomitant]
  6. METOPROL, MIRAPEX, OXYCODONE [Concomitant]
  7. BUMETANIDE, CALCITRIOL, CULTURELLE [Concomitant]
  8. EPIPEN, FLONASE, HYDROCORT [Concomitant]
  9. LINZESS, MAGNESIUM, MECLIZINE [Concomitant]
  10. VIBRYD, ZOFRAN [Concomitant]

REACTIONS (1)
  - Hip arthroplasty [None]

NARRATIVE: CASE EVENT DATE: 20190510
